FAERS Safety Report 9934871 (Version 1)
Quarter: 2014Q1

REPORT INFORMATION
  Report Type: Spontaneous
  Country: US (occurrence: US)
  Receive Date: 20140228
  Receipt Date: 20140228
  Transmission Date: 20141002
  Serious: No
  Sender: FDA-Public Use
  Company Number: US-ASTRAZENECA-2013SE91786

PATIENT
  Age: 40 Year
  Sex: Male
  Weight: 81.6 kg

DRUGS (2)
  1. TOPROL-XL [Suspect]
     Indication: SYNCOPE
     Dosage: 25 MG DAILY, GENERIC
     Route: 048
     Dates: start: 201102
  2. TOPROL-XL [Suspect]
     Indication: SYNCOPE
     Route: 048
     Dates: start: 2013

REACTIONS (9)
  - Condition aggravated [Unknown]
  - Hyperhidrosis [Unknown]
  - Hypoaesthesia oral [Unknown]
  - Hypoaesthesia oral [Unknown]
  - Hypoaesthesia [Unknown]
  - Paraesthesia oral [Unknown]
  - Dysgeusia [Unknown]
  - Adverse event [Unknown]
  - Intentional drug misuse [Unknown]
